FAERS Safety Report 5082970-4 (Version None)
Quarter: 2006Q3

REPORT INFORMATION
  Report Type: 
  Country: None (occurrence: None)
  Receive Date: 20060814
  Receipt Date: 20060728
  Transmission Date: 20061208
  Serious: Yes (Hospitalization)
  Sender: FDA-Public Use
  Company Number: S06-FIN-03147-01

PATIENT
  Age: 72 Year
  Sex: Female

DRUGS (9)
  1. CITALOPRAM HYDROBROMIDE [Suspect]
     Indication: AFFECTIVE DISORDER
     Dosage: 10 MG QD PO
     Route: 048
     Dates: start: 20060713, end: 20060715
  2. CITALOPRAM HYDROBROMIDE [Suspect]
     Indication: AFFECTIVE DISORDER
     Dosage: 5 MG QD PO
     Route: 048
     Dates: start: 20060701, end: 20060712
  3. OVESTIN (ESTRIOL) [Concomitant]
  4. LIPITOR [Concomitant]
  5. ENALAPRIL MALEATE [Concomitant]
  6. PANTOPRAZOLE SODIUM [Concomitant]
  7. STELLA (ZOLPIDEM TARTRATE) [Concomitant]
  8. DINIT (ISOSORBIDE DINITRATE) [Concomitant]
  9. VISCOTEARS (CARBOMER) [Concomitant]

REACTIONS (4)
  - ABDOMINAL PAIN UPPER [None]
  - HYPONATRAEMIA [None]
  - NAUSEA [None]
  - VOMITING [None]
